FAERS Safety Report 24077225 (Version 1)
Quarter: 2024Q3

REPORT INFORMATION
  Report Type: Spontaneous
  Country: JP (occurrence: JP)
  Receive Date: 20240711
  Receipt Date: 20240711
  Transmission Date: 20241016
  Serious: No
  Sender: PIERRE FABRE MEDICAMENT
  Company Number: JP-PFM-2023-05027

PATIENT
  Age: 6 Month
  Sex: Male

DRUGS (3)
  1. PROPRANOLOL HYDROCHLORIDE [Suspect]
     Active Substance: PROPRANOLOL HYDROCHLORIDE
     Indication: Infantile haemangioma
     Dosage: 1 MG/KG/DAY (0.5 MG/KG/12 HOURS)
     Route: 048
     Dates: start: 20221031, end: 20221101
  2. PROPRANOLOL HYDROCHLORIDE [Suspect]
     Active Substance: PROPRANOLOL HYDROCHLORIDE
     Dosage: 2 MG/KG/DAY (1 MG/KG/12 HOURS)
     Route: 048
     Dates: start: 20221102, end: 20221110
  3. PROPRANOLOL HYDROCHLORIDE [Suspect]
     Active Substance: PROPRANOLOL HYDROCHLORIDE
     Dosage: 2 MG/KG/DAY (1 MG/KG/12 HOURS)
     Route: 048
     Dates: start: 20221212, end: 202306

REACTIONS (4)
  - Salivary hypersecretion [Recovered/Resolved]
  - Wheezing [Recovered/Resolved]
  - Product use issue [Unknown]
  - Off label use [Unknown]

NARRATIVE: CASE EVENT DATE: 20221109
